FAERS Safety Report 21308987 (Version 1)
Quarter: 2022Q3

REPORT INFORMATION
  Report Type: Report from Study
  Country: US (occurrence: US)
  Receive Date: 20220908
  Receipt Date: 20220908
  Transmission Date: 20221026
  Serious: Yes (Other)
  Sender: FDA-Public Use
  Company Number: US-BRISTOL-MYERS SQUIBB COMPANY-2022-099758

PATIENT
  Age: 73 Year
  Sex: Male

DRUGS (2)
  1. APIXABAN [Suspect]
     Active Substance: APIXABAN
     Indication: Product used for unknown indication
     Route: 065
  2. MULTAQ [Concomitant]
     Active Substance: DRONEDARONE
     Indication: Product used for unknown indication
     Route: 065

REACTIONS (1)
  - Cardiogenic shock [Unknown]

NARRATIVE: CASE EVENT DATE: 20220829
